FAERS Safety Report 20948842 (Version 2)
Quarter: 2022Q2

REPORT INFORMATION
  Report Type: Spontaneous
  Country: JP (occurrence: JP)
  Receive Date: 20220612
  Receipt Date: 20220622
  Transmission Date: 20220721
  Serious: No
  Sender: FDA-Public Use
  Company Number: JP-JNJFOC-20220612281

PATIENT
  Age: 79 Year
  Sex: Female

DRUGS (5)
  1. RISPERDAL [Suspect]
     Active Substance: RISPERIDONE
     Indication: Product used for unknown indication
     Dosage: P.R.N
     Route: 048
  2. RISPERDAL [Suspect]
     Active Substance: RISPERIDONE
     Indication: Product used for unknown indication
     Dosage: IN THE MORNING AND EVENING
     Route: 048
     Dates: start: 20220602
  3. LORAZEPAM [Concomitant]
     Active Substance: LORAZEPAM
     Route: 048
  4. ROZEREM [Concomitant]
     Active Substance: RAMELTEON
     Dosage: DOSE UNKNOWN
     Route: 048
  5. TIAPRIDE HYDROCHLORIDE [Concomitant]
     Active Substance: TIAPRIDE HYDROCHLORIDE
     Route: 048

REACTIONS (6)
  - Hypersomnia [Unknown]
  - Feeling abnormal [Unknown]
  - Sedation complication [Unknown]
  - Product prescribing error [Unknown]
  - Inappropriate schedule of product administration [Unknown]
  - Off label use [Unknown]

NARRATIVE: CASE EVENT DATE: 20220601
